FAERS Safety Report 4947618-5 (Version None)
Quarter: 2006Q1

REPORT INFORMATION
  Report Type: 
  Country: None (occurrence: None)
  Receive Date: 20060314
  Receipt Date: 20060228
  Transmission Date: 20060701
  Serious: Yes (Hospitalization)
  Sender: FDA-Public Use
  Company Number: 222634

PATIENT
  Age: 56 Year
  Sex: Female
  Weight: 61.7 kg

DRUGS (1)
  1. AVASTIN [Suspect]
     Indication: LUNG NEOPLASM MALIGNANT
     Dosage: 1050 MG, 1/MONTH, INTRAVENOUS
     Route: 042
     Dates: start: 20050915, end: 20051209

REACTIONS (2)
  - ABDOMINAL PAIN [None]
  - INTESTINAL PERFORATION [None]
